FAERS Safety Report 7203422-9 (Version None)
Quarter: 2010Q4

REPORT INFORMATION
  Report Type: 
  Country: None (occurrence: None)
  Receive Date: 20101220
  Receipt Date: 20101203
  Transmission Date: 20110411
  Serious: Yes (Death)
  Sender: FDA-Public Use
  Company Number: 023266

PATIENT
  Sex: Male

DRUGS (1)
  1. CIMZIA [Suspect]
     Indication: CROHN'S DISEASE
     Dosage: (400; 1MONTH SUBCUTANEOUS)
     Route: 058
     Dates: start: 20100830, end: 20100101

REACTIONS (1)
  - MYOCARDIAL INFARCTION [None]
